FAERS Safety Report 26110705 (Version 1)
Quarter: 2025Q4

REPORT INFORMATION
  Report Type: Spontaneous
  Country: BR (occurrence: BR)
  Receive Date: 20251202
  Receipt Date: 20251202
  Transmission Date: 20260117
  Serious: Yes (Disabling, Other)
  Sender: EMD SERONO INC
  Company Number: BR-Merck Healthcare KGaA-2025059350

PATIENT
  Sex: Female

DRUGS (7)
  1. GLIFAGE [Suspect]
     Active Substance: METFORMIN HYDROCHLORIDE
     Indication: Type 2 diabetes mellitus
     Dosage: 1 TABLET IN THE MORNING AND 1 TABLET AT NIGHT
  2. GLICLAZIDE [Suspect]
     Active Substance: GLICLAZIDE
     Indication: Product used for unknown indication
  3. XARELTO [Suspect]
     Active Substance: RIVAROXABAN
     Indication: Product used for unknown indication
  4. DIOSMIN [Suspect]
     Active Substance: DIOSMIN
     Indication: Gait disturbance
  5. LOSARTAN [Suspect]
     Active Substance: LOSARTAN
     Indication: Hypertension
  6. HYDROCHLOROTHIAZIDE [Suspect]
     Active Substance: HYDROCHLOROTHIAZIDE
     Indication: Blood disorder
     Dosage: 60MG AND BREAKS THE TABLET TO ADMINISTER 30 MG
  7. METOPROLOL TARTRATE [Suspect]
     Active Substance: METOPROLOL TARTRATE
     Indication: Product used for unknown indication

REACTIONS (9)
  - Venous thrombosis [Unknown]
  - Abdominal hernia [Unknown]
  - Blindness unilateral [Unknown]
  - Cataract [Unknown]
  - Dyspepsia [Unknown]
  - Gait disturbance [Unknown]
  - Dysphonia [Unknown]
  - Diarrhoea [Unknown]
  - Off label use [Unknown]
